FAERS Safety Report 22673523 (Version 6)
Quarter: 2024Q3

REPORT INFORMATION
  Report Type: Spontaneous
  Country: US (occurrence: US)
  Receive Date: 20230705
  Receipt Date: 20240927
  Transmission Date: 20241017
  Serious: Yes (Other)
  Sender: PFIZER
  Company Number: US-PFIZER INC-202300236353

PATIENT
  Age: 40 Year
  Sex: Male
  Weight: 79 kg

DRUGS (5)
  1. OXBRYTA [Suspect]
     Active Substance: VOXELOTOR
     Indication: Sickle cell disease
     Dosage: 1500 MG, 1X/DAY (500 MG, 3 TABLETS, ONCE DAILY)
     Route: 048
     Dates: start: 20210626
  2. OXBRYTA [Suspect]
     Active Substance: VOXELOTOR
     Dosage: 500MG, 3 TABLETS ONCE DAILY, ORALLY
     Route: 048
     Dates: start: 20210909
  3. MS CONTIN [Concomitant]
     Active Substance: MORPHINE SULFATE
     Indication: Bone pain
     Dosage: Q12H(EVERY 12 HOURS)
  4. GABAPENTIN [Concomitant]
     Active Substance: GABAPENTIN
     Dosage: 400 MG, 3X/DAY
  5. HYDROXYUREA [Concomitant]
     Active Substance: HYDROXYUREA
     Indication: Pain
     Dosage: 500 MG, 2X/DAY

REACTIONS (3)
  - Drug ineffective [Not Recovered/Not Resolved]
  - Osteonecrosis [Not Recovered/Not Resolved]
  - Pain [Not Recovered/Not Resolved]

NARRATIVE: CASE EVENT DATE: 20230525
